FAERS Safety Report 19629107 (Version 3)
Quarter: 2021Q4

REPORT INFORMATION
  Report Type: Report from Study
  Country: US (occurrence: US)
  Receive Date: 20210729
  Receipt Date: 20211116
  Transmission Date: 20220303
  Serious: Yes (Other)
  Sender: FDA-Public Use
  Company Number: US-JAZZ-2020-US-005419

PATIENT
  Sex: Female

DRUGS (23)
  1. XYREM [Suspect]
     Active Substance: SODIUM OXYBATE
     Indication: Narcolepsy
     Dosage: 3 GRAM, BID
     Route: 048
     Dates: start: 201910
  2. AMLODIPINE;ATORVASTATIN [Concomitant]
  3. ASPIRIN [Concomitant]
     Active Substance: ASPIRIN
  4. BYETTA [Concomitant]
     Active Substance: EXENATIDE
  5. COENZYME Q10 [Concomitant]
     Active Substance: DIETARY SUPPLEMENT\UBIDECARENONE
  6. FERROUS SULFATE [Concomitant]
     Active Substance: FERROUS SULFATE
  7. FISH OIL [Concomitant]
     Active Substance: FISH OIL
  8. FLUCONAZOLE [Concomitant]
     Active Substance: FLUCONAZOLE
  9. FLUOXETINE HYDROCHLORIDE [Concomitant]
     Active Substance: FLUOXETINE HYDROCHLORIDE
  10. GABAPENTIN [Concomitant]
     Active Substance: GABAPENTIN
  11. DIETARY SUPPLEMENT [Concomitant]
     Active Substance: DIETARY SUPPLEMENT
  12. HERBAL LAXATIVE [SENNA ALEXANDRINA] [Concomitant]
  13. ACETAMINOPHEN\HYDROCODONE [Concomitant]
     Active Substance: ACETAMINOPHEN\HYDROCODONE
  14. IBUPROFEN [Concomitant]
     Active Substance: IBUPROFEN
  15. LASIX [Concomitant]
     Active Substance: FUROSEMIDE
  16. METFORMIN HYDROCHLORIDE [Concomitant]
     Active Substance: METFORMIN HYDROCHLORIDE
  17. METOPROLOL TARTRATE [Concomitant]
     Active Substance: METOPROLOL TARTRATE
  18. NP THYROID [Concomitant]
     Active Substance: LEVOTHYROXINE\LIOTHYRONINE
  19. OMEPRAZOLE [Concomitant]
     Active Substance: OMEPRAZOLE
  20. OXYBUTYNIN [Concomitant]
     Active Substance: OXYBUTYNIN
  21. SUDAFED [Concomitant]
     Active Substance: PSEUDOEPHEDRINE HYDROCHLORIDE
  22. VITAMIN D3 [Concomitant]
     Active Substance: CHOLECALCIFEROL
  23. PREVAGEN [APOAEQUORIN;COLECALCIFEROL] [Concomitant]
     Indication: Memory impairment

REACTIONS (3)
  - Cholecystectomy [Unknown]
  - Urinary incontinence [Not Recovered/Not Resolved]
  - Cystitis [Not Recovered/Not Resolved]
